FAERS Safety Report 5129286-5 (Version None)
Quarter: 2006Q4

REPORT INFORMATION
  Report Type: 
  Country: None (occurrence: None)
  Receive Date: 20061011
  Receipt Date: 20060929
  Transmission Date: 20070319
  Serious: Yes (Hospitalization)
  Sender: FDA-Public Use
  Company Number: 2005JP001490

PATIENT
  Age: 44 Year
  Sex: Male
  Weight: 47 kg

DRUGS (8)
  1. PROGRAF [Suspect]
     Indication: RENAL TRANSPLANT
     Dosage: 3.75 MG, UID/QD,IV NOS
     Route: 042
     Dates: start: 20050222, end: 20050223
  2. PROGRAF [Suspect]
     Indication: RENAL TRANSPLANT
     Dosage: 6 MG, BID, ORAL
     Route: 048
     Dates: start: 20050223
  3. CELLCEPT [Concomitant]
  4. MEDROL [Concomitant]
  5. NU LOTAN (LOSARTAN POTASSIUM) TABLET [Concomitant]
  6. GASTER INJECTION [Concomitant]
  7. GASTER TABLET [Concomitant]
  8. BREDININ (MIZORIBINE) TABLET [Concomitant]

REACTIONS (6)
  - ACTIVATED PARTIAL THROMBOPLASTIN TIME PROLONGED [None]
  - ARTHRALGIA [None]
  - BONE MARROW OEDEMA [None]
  - GAIT DISTURBANCE [None]
  - PAIN IN EXTREMITY [None]
  - THROMBOPHLEBITIS SUPERFICIAL [None]
